FAERS Safety Report 5481433-1 (Version None)
Quarter: 2007Q4

REPORT INFORMATION
  Report Type: 
  Country: None (occurrence: None)
  Receive Date: 20071010
  Receipt Date: 20071005
  Transmission Date: 20080405
  Serious: Yes (Other)
  Sender: FDA-Public Use
  Company Number: B0490011A

PATIENT
  Age: 41 Year
  Sex: Female

DRUGS (3)
  1. PAXIL [Suspect]
     Indication: COMPLETED SUICIDE
     Route: 048
     Dates: start: 20070901, end: 20070901
  2. RIZE [Concomitant]
     Dosage: 117 PER DAY
     Route: 048
     Dates: start: 20070901, end: 20070901
  3. UNKNOWN [Concomitant]
     Route: 048
     Dates: start: 20070901, end: 20070901

REACTIONS (4)
  - ELECTROCARDIOGRAM QT PROLONGED [None]
  - INTENTIONAL OVERDOSE [None]
  - SUICIDE ATTEMPT [None]
  - VENTRICULAR TACHYCARDIA [None]
